FAERS Safety Report 9218874 (Version 1)
Quarter: 2013Q2

REPORT INFORMATION
  Report Type: Spontaneous
  Country: US (occurrence: US)
  Receive Date: 20130409
  Receipt Date: 20130409
  Transmission Date: 20140414
  Serious: No
  Sender: FDA-Public Use
  Company Number: US-009507513-1304USA001893

PATIENT
  Sex: Female

DRUGS (3)
  1. PEG-INTRON [Suspect]
     Indication: HEPATITIS C
     Dosage: REDIPEN
     Dates: start: 20130401
  2. REBETOL [Suspect]
     Indication: HEPATITIS C
     Dosage: UNK
     Dates: start: 20130401
  3. TELAPREVIR [Suspect]
     Indication: HEPATITIS C
     Dosage: UNK
     Dates: start: 20130401

REACTIONS (10)
  - Dizziness [Unknown]
  - Nausea [Unknown]
  - Headache [Unknown]
  - Pyrexia [Unknown]
  - Respiratory disorder [Unknown]
  - Pyrexia [Unknown]
  - Chills [Unknown]
  - Dizziness [Unknown]
  - Pruritus [Unknown]
  - Rhinitis [Unknown]
